FAERS Safety Report 6361091-4 (Version None)
Quarter: 2009Q3

REPORT INFORMATION
  Report Type: 
  Country: None (occurrence: None)
  Receive Date: 20090916
  Receipt Date: 20090916
  Transmission Date: 20100115
  Serious: Yes (Disabling)
  Sender: FDA-Public Use
  Company Number: None

PATIENT
  Sex: Female
  Weight: 88.4514 kg

DRUGS (4)
  1. NEUROTIN 200MG 3X DAY GENERIC GABAPENTIN 100MG [Suspect]
     Indication: NEUROPATHY PERIPHERAL
     Dosage: 200MG 3X DAY PO
     Route: 048
  2. NAVANE [Concomitant]
  3. HYDROCHLOROTHIAZIDE [Concomitant]
  4. ELAVIL [Concomitant]

REACTIONS (2)
  - DRUG INEFFECTIVE [None]
  - INADEQUATE ANALGESIA [None]
